FAERS Safety Report 8171463-3 (Version None)
Quarter: 2012Q1

REPORT INFORMATION
  Report Type: 
  Country: None (occurrence: None)
  Receive Date: 20120104
  Receipt Date: 20111121
  Transmission Date: 20120608
  Serious: No
  Sender: FDA-Public Use
  Company Number: 2011HGS-002851

PATIENT
  Age: 43 Year
  Sex: Female
  Weight: 55.7924 kg

DRUGS (7)
  1. CALCIUM (CALCIUM)(CALCIUM) [Concomitant]
  2. BABY ASPIRIN (ACETYLSALICYLIC ACID)(ACETYLSALICYLIC ACID) [Concomitant]
  3. MULTIVITAMIN (MULTIVITAMINS)(ERGOCALCIFEROL, ASCORBIC ACID, FOLIC ACID [Concomitant]
  4. PREDNISONE [Concomitant]
  5. BENLYSTA [Suspect]
     Indication: SYSTEMIC LUPUS ERYTHEMATOSUS
     Dosage: 10 MG/KG, INTRAVENOUS DRIP
     Route: 041
     Dates: start: 20111003, end: 20111003
  6. RECLAST (ZOLEDRONIC ACID)(ZOLEDRONIC ACID) [Concomitant]
  7. PLAQUENIL (HYDROXYCHLOROQUINE SULFATE)(HYDROXYCHLOROQUINE SULFATE) [Concomitant]

REACTIONS (4)
  - INSOMNIA [None]
  - DIARRHOEA [None]
  - HEADACHE [None]
  - WHITE BLOOD CELL COUNT DECREASED [None]
